FAERS Safety Report 9107680 (Version 5)
Quarter: 2013Q3

REPORT INFORMATION
  Report Type: Spontaneous
  Country: US (occurrence: US)
  Receive Date: 20130221
  Receipt Date: 20130808
  Transmission Date: 20140515
  Serious: Yes (Hospitalization, Disabling, Other)
  Sender: FDA-Public Use
  Company Number: US-009507513-1202USA00869

PATIENT
  Sex: Female
  Weight: 97.96 kg

DRUGS (7)
  1. FOSAMAX [Suspect]
     Indication: OSTEOPOROSIS
     Dosage: 10 MG, QD
     Route: 048
     Dates: start: 1996, end: 1998
  2. FOSAMAX [Suspect]
     Indication: OSTEOPENIA
     Dosage: 10 MG, QD
     Route: 048
     Dates: start: 2000, end: 2004
  3. FOSAMAX [Suspect]
     Dosage: 70 MG, QW
     Route: 048
     Dates: start: 200512, end: 200802
  4. ALENDRONATE SODIUM [Suspect]
     Indication: OSTEOPOROSIS
     Dosage: 70 MG, QW
     Route: 048
     Dates: start: 200802, end: 200804
  5. ALENDRONATE SODIUM [Suspect]
     Indication: OSTEOPENIA
  6. BONIVA [Suspect]
     Indication: OSTEOPOROSIS
     Dosage: 150 MG, QW
     Route: 048
     Dates: start: 200804
  7. BONIVA [Suspect]
     Indication: OSTEOPENIA

REACTIONS (31)
  - Femur fracture [Unknown]
  - Open reduction of fracture [Unknown]
  - Knee arthroplasty [Unknown]
  - Gallbladder operation [Unknown]
  - Gallbladder disorder [Unknown]
  - Depression [Unknown]
  - Anxiety [Unknown]
  - Depression [Unknown]
  - Fall [Unknown]
  - Bursitis [Unknown]
  - Post procedural infection [Unknown]
  - Foot fracture [Unknown]
  - Arthritis [Unknown]
  - Vitamin D deficiency [Unknown]
  - Tooth extraction [Unknown]
  - Hypertension [Unknown]
  - Hormone therapy [Unknown]
  - Varicose vein [Unknown]
  - Infection [Unknown]
  - Cough [Recovering/Resolving]
  - Rib fracture [Unknown]
  - Psoriasis [Unknown]
  - Rheumatoid arthritis [Unknown]
  - Fibromyalgia [Unknown]
  - Migraine [Unknown]
  - Foot fracture [Unknown]
  - Foot fracture [Unknown]
  - Back injury [Unknown]
  - Intervertebral disc disorder [Unknown]
  - Pain [Unknown]
  - Gastrooesophageal reflux disease [Unknown]
